FAERS Safety Report 12413312 (Version 1)
Quarter: 2016Q2

REPORT INFORMATION
  Report Type: Spontaneous
  Country: US (occurrence: US)
  Receive Date: 20160527
  Receipt Date: 20160527
  Transmission Date: 20160815
  Serious: Yes (Other)
  Sender: FDA-Public Use
  Company Number: US-SUNOVION-2016SUN001308

PATIENT
  Sex: Female
  Weight: 59.41 kg

DRUGS (7)
  1. VITAMIN D [Concomitant]
     Active Substance: CHOLECALCIFEROL
     Dosage: 50000 IU, QW
     Route: 048
  2. ALPRAZOLAM. [Concomitant]
     Active Substance: ALPRAZOLAM
     Indication: POOR QUALITY SLEEP
     Dosage: .25 MG, AS NECESSARY
     Route: 048
  3. ARAVA [Concomitant]
     Active Substance: LEFLUNOMIDE
     Indication: RHEUMATOID ARTHRITIS
     Dosage: 10 MG, QD
     Route: 048
  4. LUNESTA [Suspect]
     Active Substance: ESZOPICLONE
     Indication: POOR QUALITY SLEEP
     Dosage: 3 MG, PRN
     Route: 048
  5. CIMZIA [Concomitant]
     Active Substance: CERTOLIZUMAB PEGOL
     Indication: RHEUMATOID ARTHRITIS
     Dosage: UNK
     Route: 065
  6. IBUPROFEN. [Concomitant]
     Active Substance: IBUPROFEN
     Indication: RHEUMATOID ARTHRITIS
     Dosage: 400 MG, AS NECESSARY
     Route: 048
  7. SERTRALINE [Concomitant]
     Active Substance: SERTRALINE HYDROCHLORIDE
     Dosage: 100 MG, QD
     Route: 048

REACTIONS (8)
  - Rheumatoid arthritis [Not Recovered/Not Resolved]
  - Soft tissue swelling [Not Recovered/Not Resolved]
  - Drug ineffective [Unknown]
  - Joint stiffness [Not Recovered/Not Resolved]
  - Arthralgia [Not Recovered/Not Resolved]
  - Poor quality sleep [Not Recovered/Not Resolved]
  - Middle insomnia [Not Recovered/Not Resolved]
  - Asthenia [Not Recovered/Not Resolved]
